FAERS Safety Report 19212187 (Version 2)
Quarter: 2021Q2

REPORT INFORMATION
  Report Type: Spontaneous
  Country: US (occurrence: US)
  Receive Date: 20210504
  Receipt Date: 20210512
  Transmission Date: 20210717
  Serious: Yes (Other)
  Sender: FDA-Public Use
  Company Number: US-PFIZER INC-2021445024

PATIENT
  Age: 29 Year
  Sex: Male

DRUGS (5)
  1. GEMCITABINE HYDROCHLORIDE. [Suspect]
     Active Substance: GEMCITABINE HYDROCHLORIDE
     Dosage: 700 MG/M2, SINGLE (INFUSION)
  2. CISPLATIN. [Concomitant]
     Active Substance: CISPLATIN
     Indication: CHOLANGIOCARCINOMA
     Dosage: UNK
  3. ECULIZUMAB [Concomitant]
     Active Substance: ECULIZUMAB
     Indication: PROPHYLAXIS
     Dosage: 900 MG, WEEKLY FOR 4 DOSES (4 DOSES FOLLOWED)
     Route: 042
  4. GEMCITABINE HYDROCHLORIDE. [Suspect]
     Active Substance: GEMCITABINE HYDROCHLORIDE
     Indication: CHOLANGIOCARCINOMA
     Dosage: 800 MG/M2, SINGLE (INFUSION)
  5. GEMCITABINE HYDROCHLORIDE. [Suspect]
     Active Substance: GEMCITABINE HYDROCHLORIDE
     Dosage: 500 MG/M2, SINGLE (INFUSION)

REACTIONS (4)
  - Off label use [Unknown]
  - Myelosuppression [Recovering/Resolving]
  - Leukopenia [Recovering/Resolving]
  - Anaemia [Recovering/Resolving]
